FAERS Safety Report 6276389 (Version 4)
Quarter: 2017Q3

REPORT INFORMATION
  Report Type: Spontaneous
  Country: US (occurrence: US)
  Receive Date: 20061108
  Receipt Date: 20170925
  Transmission Date: 20171128
  Serious: Yes (Hospitalization, Other)
  Sender: FDA-Public Use
  Company Number: US-PFIZER INC-2006133684

PATIENT
  Sex: Female

DRUGS (3)
  1. VIOXX [Suspect]
     Active Substance: ROFECOXIB
     Dosage: UNK
     Dates: start: 20011213, end: 20030930
  2. BEXTRA [Suspect]
     Active Substance: VALDECOXIB
     Dosage: UNK
  3. CELEBREX [Suspect]
     Active Substance: CELECOXIB
     Indication: ARTHRITIS
     Dosage: 200 MG, 1X/DAY
     Dates: start: 20020326, end: 20020701

REACTIONS (1)
  - Ischaemic stroke [Unknown]

NARRATIVE: CASE EVENT DATE: 20020615
